FAERS Safety Report 8505238-X (Version None)
Quarter: 2012Q3

REPORT INFORMATION
  Report Type: 
  Country: None (occurrence: None)
  Receive Date: 20120712
  Receipt Date: 20120702
  Transmission Date: 20120928
  Serious: Yes (Hospitalization)
  Sender: FDA-Public Use
  Company Number: GB-SANOFI-AVENTIS-2012SA047219

PATIENT
  Age: 71 Year
  Sex: Male

DRUGS (5)
  1. THIAMINE [Concomitant]
     Route: 065
  2. SIMVASTATIN [Concomitant]
     Dosage: AT NIGHT
     Route: 065
  3. AMITRIPTYLINE HCL [Concomitant]
     Dosage: AT NIGHT
     Route: 065
  4. CLOPIDOGREL [Suspect]
     Dosage: IN THE MORNING
     Route: 048
  5. PERINDOPRIL ERBUMINE [Concomitant]
     Dosage: IN THE MORNING
     Route: 065

REACTIONS (4)
  - OESOPHAGITIS [None]
  - HAEMATEMESIS [None]
  - HAEMOGLOBIN DECREASED [None]
  - BLOOD UREA INCREASED [None]
